FAERS Safety Report 13662585 (Version 8)
Quarter: 2018Q1

REPORT INFORMATION
  Report Type: Report from Study
  Country: DE (occurrence: DE)
  Receive Date: 20170618
  Receipt Date: 20180201
  Transmission Date: 20180508
  Serious: Yes (Hospitalization)
  Sender: FDA-Public Use
  Company Number: DE-UCBSA-2017022399

PATIENT
  Age: 23 Year
  Sex: Female
  Weight: 59 kg

DRUGS (5)
  1. CETIRIZINE [Concomitant]
     Active Substance: CETIRIZINE HYDROCHLORIDE
     Indication: SURGERY
     Dosage: 10 MG, AS NEEDED (PRN)
     Route: 048
  2. LAMUNA [Concomitant]
     Active Substance: DESOGESTREL\ETHINYL ESTRADIOL
     Indication: CONTRACEPTION
     Dosage: UNK, ONCE DAILY (QD)
     Route: 048
     Dates: start: 2012
  3. IBUPROFEN. [Concomitant]
     Active Substance: IBUPROFEN
     Indication: PRODUCT USED FOR UNKNOWN INDICATION
     Dosage: 600 MG, AS NEEDED (PRN)
     Route: 048
     Dates: start: 20170512, end: 20170602
  4. CERTOLIZUMAB PEGOL [Suspect]
     Active Substance: CERTOLIZUMAB PEGOL
     Indication: AXIAL SPONDYLOARTHRITIS
     Dosage: 200 MG EVERY 2 WEEKS OR EVERY 4 WEEKS (BATCH NUMBER:BX1014507)
     Route: 058
     Dates: start: 20161014, end: 20170512
  5. NOVAMINSULFON [Concomitant]
     Active Substance: METAMIZOLE
     Indication: AXIAL SPONDYLOARTHRITIS
     Dosage: 500 MG, AS NEEDED (PRN)
     Route: 048
     Dates: start: 201607

REACTIONS (2)
  - Urticaria [Recovered/Resolved with Sequelae]
  - Eczema [Recovered/Resolved with Sequelae]

NARRATIVE: CASE EVENT DATE: 20170427
